FAERS Safety Report 21496928 (Version 2)
Quarter: 2023Q1

REPORT INFORMATION
  Report Type: Report from Study
  Country: US (occurrence: US)
  Receive Date: 20221022
  Receipt Date: 20230125
  Transmission Date: 20230417
  Serious: Yes (Other)
  Sender: FDA-Public Use
  Company Number: US-ABBVIE-4169856

PATIENT
  Sex: Female

DRUGS (1)
  1. VENCLEXTA [Suspect]
     Active Substance: VENETOCLAX
     Indication: Acute myeloid leukaemia
     Route: 048
     Dates: start: 20221002

REACTIONS (5)
  - Platelet count decreased [Unknown]
  - Diarrhoea [Unknown]
  - Hypotension [Unknown]
  - Full blood count decreased [Unknown]
  - Clostridium difficile infection [Unknown]
